FAERS Safety Report 22120790 (Version 3)
Quarter: 2024Q2

REPORT INFORMATION
  Report Type: Spontaneous
  Country: US (occurrence: AU)
  Receive Date: 20230321
  Receipt Date: 20240423
  Transmission Date: 20240716
  Serious: Yes (Hospitalization)
  Sender: FDA-Public Use
  Company Number: US-JNJFOC-20230326500

PATIENT
  Age: 69 Year
  Sex: Male
  Weight: 81.9 kg

DRUGS (7)
  1. ZYTIGA [Suspect]
     Active Substance: ABIRATERONE ACETATE
     Indication: Prostate cancer
     Route: 048
     Dates: start: 20230203, end: 20230301
  2. PREDNISOLONE [Suspect]
     Active Substance: PREDNISOLONE
     Indication: Prostate cancer
     Route: 048
     Dates: start: 20230203
  3. ABEMACICLIB [Suspect]
     Active Substance: ABEMACICLIB
     Indication: Prostate cancer
     Route: 048
     Dates: start: 20230316
  4. ABEMACICLIB [Suspect]
     Active Substance: ABEMACICLIB
     Route: 048
     Dates: start: 20230203, end: 20230301
  5. OLMESARTAN MEDOXOMIL [Concomitant]
     Active Substance: OLMESARTAN MEDOXOMIL
     Indication: Hypertension
     Route: 065
     Dates: start: 2018
  6. PANTOPRAZOLE SODIUM [Concomitant]
     Active Substance: PANTOPRAZOLE SODIUM
     Indication: Gastrooesophageal reflux disease
     Route: 065
     Dates: start: 2016
  7. ROSUVASTATIN CALCIUM [Concomitant]
     Active Substance: ROSUVASTATIN CALCIUM
     Indication: Hypercholesterolaemia
     Route: 065
     Dates: start: 202212

REACTIONS (3)
  - Acute kidney injury [Recovered/Resolved]
  - Hypophagia [Unknown]
  - Dehydration [Unknown]

NARRATIVE: CASE EVENT DATE: 20230301
